FAERS Safety Report 16413209 (Version 1)
Quarter: 2019Q2

REPORT INFORMATION
  Report Type: Spontaneous
  Country: US (occurrence: US)
  Receive Date: 20190503
  Receipt Date: 20190503
  Transmission Date: 20190711
  Serious: Yes (Hospitalization)
  Sender: FDA-Public Use
  Company Number: None

PATIENT
  Age: 79 Year
  Sex: Female
  Weight: 100.4 kg

DRUGS (2)
  1. FASLODEX [Suspect]
     Active Substance: FULVESTRANT
     Dates: end: 20190411
  2. PALBOCICLIB (PD-033299) [Suspect]
     Active Substance: PALBOCICLIB
     Dates: end: 20190421

REACTIONS (3)
  - Therapy cessation [None]
  - Pneumonia [None]
  - Nasopharyngitis [None]

NARRATIVE: CASE EVENT DATE: 20190426
